FAERS Safety Report 6596798-7 (Version None)
Quarter: 2010Q1

REPORT INFORMATION
  Report Type: 
  Country: None (occurrence: None)
  Receive Date: 20100212
  Receipt Date: 20100122
  Transmission Date: 20100710
  Serious: Yes (Death)
  Sender: FDA-Public Use
  Company Number: 2010000246

PATIENT
  Age: 28 Year
  Sex: Female
  Weight: 32.659 kg

DRUGS (7)
  1. ACTIQ [Suspect]
     Indication: BACK PAIN
     Dosage: 2400 MCG (600 MCG, 4 IN 1 D), BU
     Route: 002
     Dates: start: 20071009
  2. DURAGESIC-100 [Suspect]
     Dosage: TRANSDERMAL
     Route: 062
  3. COUMADIN [Concomitant]
  4. LOPRESSOR [Concomitant]
  5. IMITREXT (SUMATRIPTAN) [Concomitant]
  6. FERROUS SULFATE TAB [Concomitant]
  7. OXYCODONE HCL (OXYCODONE HYDROCHLORIDE) [Concomitant]

REACTIONS (5)
  - CARDIAC ARREST [None]
  - DEVICE FAILURE [None]
  - DRUG PRESCRIBING ERROR [None]
  - PULSE ABSENT [None]
  - THERAPEUTIC AGENT TOXICITY [None]
